FAERS Safety Report 5087452-1 (Version None)
Quarter: 2006Q3

REPORT INFORMATION
  Report Type: 
  Country: None (occurrence: None)
  Receive Date: 20060822
  Receipt Date: 20060822
  Transmission Date: 20061208
  Serious: No
  Sender: FDA-Public Use
  Company Number: None

PATIENT
  Sex: Female

DRUGS (1)
  1. LOMOTIL [Suspect]
     Indication: COLITIS COLLAGENOUS
     Dosage: 5 TABS   DAILY
     Dates: start: 20050801, end: 20060801

REACTIONS (3)
  - ABDOMINAL DISTENSION [None]
  - FLATULENCE [None]
  - MUSCLE SPASMS [None]
